FAERS Safety Report 8351427-7 (Version None)
Quarter: 2012Q2

REPORT INFORMATION
  Report Type: 
  Country: None (occurrence: None)
  Receive Date: 20120510
  Receipt Date: 20120508
  Transmission Date: 20120825
  Serious: Yes (Death, Other)
  Sender: FDA-Public Use
  Company Number: JP-ROCHE-1067450

PATIENT
  Sex: Male

DRUGS (3)
  1. ALIMTA [Suspect]
     Indication: LUNG CANCER METASTATIC
     Dosage: DOSAGE IS UNCERTAIN.
     Route: 041
     Dates: start: 20120328, end: 20120427
  2. CISPLATIN [Suspect]
     Indication: LUNG CANCER METASTATIC
     Dosage: DOSAGE IS UNCERTAIN.
     Route: 041
     Dates: start: 20120328, end: 20120427
  3. AVASTIN [Suspect]
     Indication: LUNG CANCER METASTATIC
     Route: 041
     Dates: start: 20120328, end: 20120427

REACTIONS (5)
  - GASTROINTESTINAL NECROSIS [None]
  - NAUSEA [None]
  - HAEMATEMESIS [None]
  - ASPHYXIA [None]
  - UPPER GASTROINTESTINAL HAEMORRHAGE [None]
